FAERS Safety Report 9033921 (Version 1)
Quarter: 2013Q1

REPORT INFORMATION
  Report Type: Spontaneous
  Country: CA (occurrence: CA)
  Receive Date: 20130128
  Receipt Date: 20130128
  Transmission Date: 20140127
  Serious: Yes (Other)
  Sender: FDA-Public Use
  Company Number: CA-AMGEN-CANSP2012068564

PATIENT
  Age: 65 Year
  Sex: Female
  Weight: 45.45 kg

DRUGS (1)
  1. PROLIA [Suspect]
     Indication: OSTEOPOROSIS
     Dosage: UNK
     Dates: start: 20111003

REACTIONS (4)
  - VIIth nerve paralysis [Not Recovered/Not Resolved]
  - Toothache [Not Recovered/Not Resolved]
  - Tooth fracture [Not Recovered/Not Resolved]
  - Alveolar osteitis [Not Recovered/Not Resolved]
